FAERS Safety Report 9626759 (Version 2)
Quarter: 2013Q4

REPORT INFORMATION
  Report Type: Spontaneous
  Country: US (occurrence: US)
  Receive Date: 20131016
  Receipt Date: 20131213
  Transmission Date: 20140711
  Serious: Yes (Death)
  Sender: FDA-Public Use
  Company Number: US-GLAXOSMITHKLINE-A1045231A

PATIENT
  Age: 77 Year
  Sex: Male

DRUGS (1)
  1. VENTOLIN [Suspect]
     Indication: ANXIETY
     Dosage: 90MCG VARIABLE DOSE
     Route: 055
     Dates: start: 20111211

REACTIONS (6)
  - Cerebrovascular accident [Fatal]
  - Cerebral thrombosis [Fatal]
  - Cerebral haemorrhage [Fatal]
  - Off label use [Unknown]
  - Drug administration error [Unknown]
  - Drug ineffective [Unknown]
